FAERS Safety Report 6167098-4 (Version None)
Quarter: 2009Q2

REPORT INFORMATION
  Report Type: 
  Country: None (occurrence: None)
  Receive Date: 20090423
  Receipt Date: 20090423
  Transmission Date: 20091009
  Serious: No
  Sender: FDA-Public Use
  Company Number: None

PATIENT
  Age: 55 Year
  Sex: Male

DRUGS (3)
  1. LEVOFLOXACIN [Suspect]
     Indication: BRONCHITIS
     Dosage: 500 MG ONCE IV
     Route: 042
     Dates: start: 20090401, end: 20090401
  2. LEVOFLOXACIN [Suspect]
     Indication: CHRONIC OBSTRUCTIVE PULMONARY DISEASE
     Dosage: 500 MG ONCE IV
     Route: 042
     Dates: start: 20090401, end: 20090401
  3. LEVOFLOXACIN [Suspect]
     Indication: CONDITION AGGRAVATED
     Dosage: 500 MG ONCE IV
     Route: 042
     Dates: start: 20090401, end: 20090401

REACTIONS (1)
  - RASH [None]
